FAERS Safety Report 7511981-1 (Version None)
Quarter: 2011Q2

REPORT INFORMATION
  Report Type: 
  Country: None (occurrence: None)
  Receive Date: 20110531
  Receipt Date: 20110523
  Transmission Date: 20111010
  Serious: Yes (Hospitalization)
  Sender: FDA-Public Use
  Company Number: PHHY2011US22308

PATIENT
  Sex: Female

DRUGS (7)
  1. TIMENTIN [Concomitant]
     Dosage: EVERY 6 HOURS
     Route: 042
  2. PULMOZYME [Concomitant]
     Dosage: BID
  3. ALBUTEROL SULFATE AUTOHALER [Concomitant]
     Dosage: TID
  4. CAYSTON [Concomitant]
     Dosage: UNK
     Dates: start: 20110422
  5. TOBI [Suspect]
     Indication: CYSTIC FIBROSIS
     Dosage: 300 MG, BID 28 DAYS ON AND 28 DAYS OFF
     Dates: start: 20110222, end: 20110418
  6. HYPERSAL [Concomitant]
     Dosage: UNK
  7. GENTAMICIN [Concomitant]
     Dosage: EVERY 8 HOURS
     Route: 042

REACTIONS (2)
  - STAPHYLOCOCCAL INFECTION [None]
  - INFECTIVE PULMONARY EXACERBATION OF CYSTIC FIBROSIS [None]
